FAERS Safety Report 11592919 (Version 2)
Quarter: 2015Q4

REPORT INFORMATION
  Report Type: Report from Study
  Country: PL (occurrence: PL)
  Receive Date: 20151005
  Receipt Date: 20151029
  Transmission Date: 20160304
  Serious: Yes (Death, Other)
  Sender: FDA-Public Use
  Company Number: PHHY2015PL117376

PATIENT
  Age: 55 Year

DRUGS (1)
  1. TASIGNA [Suspect]
     Active Substance: NILOTINIB
     Indication: CHRONIC MYELOID LEUKAEMIA
     Dosage: 400 OT, BID
     Route: 048
     Dates: start: 20150605, end: 20150909

REACTIONS (2)
  - Death [Fatal]
  - Central nervous system leukaemia [Unknown]

NARRATIVE: CASE EVENT DATE: 20151006
